FAERS Safety Report 5556846-X (Version None)
Quarter: 2007Q4

REPORT INFORMATION
  Report Type: 
  Country: None (occurrence: None)
  Receive Date: 20071210
  Receipt Date: 20071210
  Transmission Date: 20080405
  Serious: Yes (Hospitalization, Other)
  Sender: FDA-Public Use
  Company Number: None

PATIENT
  Age: 67 Year
  Sex: Male

DRUGS (1)
  1. SIMVASTATIN [Suspect]
     Indication: RHABDOMYOLYSIS
     Dosage: PO
     Route: 048
     Dates: end: 20071019

REACTIONS (2)
  - BLOOD CREATINE PHOSPHOKINASE INCREASED [None]
  - RHABDOMYOLYSIS [None]
